FAERS Safety Report 9269103 (Version 1)
Quarter: 2013Q2

REPORT INFORMATION
  Report Type: Spontaneous
  Country: GB (occurrence: GB)
  Receive Date: 20130503
  Receipt Date: 20130503
  Transmission Date: 20140414
  Serious: Yes (Other)
  Sender: FDA-Public Use
  Company Number: GB-009507513-1305GBR000674

PATIENT
  Age: 75 Year
  Sex: Female
  Weight: 81.5 kg

DRUGS (11)
  1. FOSAMAX [Suspect]
     Dosage: UNK
     Route: 048
     Dates: start: 20130325
  2. ASPIRIN [Concomitant]
     Dosage: UNK
     Dates: start: 20121227, end: 20130315
  3. BENDROFLUMETHIAZIDE [Concomitant]
     Dosage: UNK
     Dates: start: 20121227, end: 20130315
  4. CALCIUM CARBONATE [Concomitant]
     Dosage: UNK
     Dates: start: 20130325
  5. ISOTARD XL [Concomitant]
     Dosage: UNK
     Dates: start: 20121227, end: 20130410
  6. OMEPRAZOLE [Concomitant]
     Dosage: UNK
     Dates: start: 20121227
  7. ACETAMINOPHEN [Concomitant]
     Dosage: UNK
     Dates: start: 20130123, end: 20130204
  8. ACETAMINOPHEN [Concomitant]
     Dosage: UNK
     Dates: start: 20130215, end: 20130227
  9. SIMVASTATIN [Concomitant]
     Dosage: UNK
     Dates: start: 20121227, end: 20130410
  10. TRAMADOL HYDROCHLORIDE [Concomitant]
     Dosage: UNK
     Dates: start: 20130124, end: 20130208
  11. ZAPAIN [Concomitant]
     Dosage: UNK
     Dates: start: 20130315, end: 20130327

REACTIONS (2)
  - Chest pain [Unknown]
  - Dyspepsia [Recovered/Resolved]
